FAERS Safety Report 5630586-0 (Version None)
Quarter: 2008Q1

REPORT INFORMATION
  Report Type: 
  Country: None (occurrence: None)
  Receive Date: 20080219
  Receipt Date: 20080214
  Transmission Date: 20080703
  Serious: Yes (Other)
  Sender: FDA-Public Use
  Company Number: B0507974A

PATIENT
  Age: 48 Year
  Sex: Male

DRUGS (2)
  1. ALKERAN [Suspect]
     Indication: DRUG USE FOR UNKNOWN INDICATION
     Dosage: 6MG TWICE PER DAY
     Route: 048
  2. ALKERAN [Suspect]
     Dosage: 4MG TWICE PER DAY
     Route: 048

REACTIONS (1)
  - CARDIAC ARREST [None]
